FAERS Safety Report 9230577 (Version 2)
Quarter: 2013Q2

REPORT INFORMATION
  Report Type: Spontaneous
  Country: US (occurrence: US)
  Receive Date: 20130415
  Receipt Date: 20130519
  Transmission Date: 20140414
  Serious: Yes (Hospitalization, Other)
  Sender: FDA-Public Use
  Company Number: US-AMGEN-USASP2013024671

PATIENT
  Age: 54 Year
  Sex: Male
  Weight: 83.08 kg

DRUGS (11)
  1. NPLATE [Suspect]
     Indication: IDIOPATHIC THROMBOCYTOPENIC PURPURA
     Dosage: 90-180 MUG, WEEKLY-MONTHLY
     Route: 058
     Dates: start: 20110624, end: 20130322
  2. LANOXIN [Concomitant]
     Dosage: 0.125 MG, EVERY MONDAY, WEDNESDAY AND FRIDAY
     Route: 048
  3. PRINIVIL [Concomitant]
     Dosage: 5 MG, UNK
     Route: 048
  4. TOPROL [Concomitant]
     Dosage: 50 MG, 30 TABLETS DAILY
     Route: 048
  5. CELLCEPT                           /01275102/ [Concomitant]
     Dosage: 500 MG, EVERY 12 HRS
     Route: 048
  6. PROTONIX [Concomitant]
     Dosage: 40 MG, QD
     Route: 048
  7. DELTASONE                          /00044701/ [Concomitant]
     Dosage: 10 MG, QD
     Route: 048
  8. DEMADEX                            /01036501/ [Concomitant]
     Dosage: 20 MG, QD
     Route: 048
  9. VALTREX [Concomitant]
     Dosage: 500 MG, QD
     Route: 048
  10. ALDACTONE                          /00006201/ [Concomitant]
     Dosage: 25 MG, 30 TABLETS DAILY
  11. CIPROFLOXACIN [Concomitant]

REACTIONS (18)
  - Acute myeloid leukaemia recurrent [Not Recovered/Not Resolved]
  - Gastrointestinal haemorrhage [Unknown]
  - Diverticulum [Unknown]
  - Renal failure chronic [Unknown]
  - Cardiac failure chronic [Unknown]
  - Mitral valve incompetence [Unknown]
  - Tricuspid valve incompetence [Unknown]
  - Atrial fibrillation [Unknown]
  - Pulmonary hypertension [Unknown]
  - Leukaemia cutis [Unknown]
  - Helicobacter infection [Unknown]
  - Oedema [Unknown]
  - Fungal infection [Unknown]
  - Abdominal distension [Unknown]
  - Blood count abnormal [Unknown]
  - Immunosuppression [Unknown]
  - Rash erythematous [Unknown]
  - Anaemia [Unknown]
